FAERS Safety Report 5072680-1 (Version None)
Quarter: 2006Q3

REPORT INFORMATION
  Report Type: 
  Country: None (occurrence: None)
  Receive Date: 20060807
  Receipt Date: 20060726
  Transmission Date: 20061208
  Serious: Yes (Life-Threatening)
  Sender: FDA-Public Use
  Company Number: GB-JNJFOC-20060703745

PATIENT
  Age: 40 Year
  Sex: Female

DRUGS (5)
  1. LIPRINEL CAP [Suspect]
     Route: 065
  2. LIPRINEL CAP [Suspect]
     Indication: DRUG USE FOR UNKNOWN INDICATION
     Route: 065
  3. ANTI-DEPRESSANTS [Concomitant]
     Route: 065
  4. CODEINE PHOSPHATE [Concomitant]
     Route: 065
  5. IMODIUM [Concomitant]
     Route: 065

REACTIONS (2)
  - HALLUCINATIONS, MIXED [None]
  - SUICIDAL IDEATION [None]
